FAERS Safety Report 10947310 (Version 1)
Quarter: 2015Q1

REPORT INFORMATION
  Report Type: Spontaneous
  Country: US (occurrence: None)
  Receive Date: 20150212
  Receipt Date: 20150212
  Transmission Date: 20150721
  Serious: No
  Sender: FDA-Public Use
  Company Number: TPA2012A00372

PATIENT
  Age: 60 Year
  Sex: Male

DRUGS (2)
  1. UNK MEDICATIONS (ALL OTHER NON-THERAPEUTIC PRODUCTS) [Concomitant]
  2. ULORIC [Suspect]
     Active Substance: FEBUXOSTAT
     Indication: GOUTY TOPHUS
     Dosage: TOTAL DAILY DOSE, PER ORAL

REACTIONS (1)
  - Liver function test abnormal [None]
